FAERS Safety Report 7341907-5 (Version None)
Quarter: 2011Q1

REPORT INFORMATION
  Report Type: 
  Country: None (occurrence: None)
  Receive Date: 20110309
  Receipt Date: 20110210
  Transmission Date: 20110831
  Serious: No
  Sender: FDA-Public Use
  Company Number: US-B.I. PHARMACEUTICALS,INC./RIDGEFIELD-2011-BP-05295BP

PATIENT
  Sex: Female

DRUGS (13)
  1. DIGOXIN [Concomitant]
     Dosage: 0.125 MG
  2. PRADAXA [Suspect]
     Indication: ATRIAL FIBRILLATION
     Dosage: 300 MG
     Route: 048
     Dates: start: 20110101
  3. CARVEDILOL [Concomitant]
     Dosage: 25 MG
  4. LEVOXYL [Concomitant]
     Dosage: 75 MCG
  5. RESTORIL [Concomitant]
     Dosage: 15 MG
  6. OMEPRAZOLE [Concomitant]
     Dosage: 80 MG
  7. POTASSIUM CL [Concomitant]
     Dosage: 20 MEQ
  8. LOVAZA [Concomitant]
  9. SENNA [Concomitant]
  10. LISINOPRIL [Concomitant]
     Indication: HYPERTENSION
     Dosage: 60 MG
     Route: 048
  11. ISOSORBIDE DINITRATE [Concomitant]
     Dosage: 60 MG
     Route: 048
  12. FUROSEMIDE [Concomitant]
     Dosage: 20 MG
  13. LORAZEPAM [Concomitant]
     Indication: SEDATIVE THERAPY

REACTIONS (2)
  - ERYTHEMA [None]
  - PRURITUS [None]
